FAERS Safety Report 8575111 (Version 2)
Quarter: 2013Q4

REPORT INFORMATION
  Report Type: Report from Study
  Country: US (occurrence: US)
  Receive Date: 20120523
  Receipt Date: 20131205
  Transmission Date: 20140711
  Serious: Yes (Hospitalization, Disabling, Other)
  Sender: FDA-Public Use
  Company Number: US-ELI_LILLY_AND_COMPANY-US201204008813

PATIENT
  Sex: Male

DRUGS (2)
  1. TERIPARATIDE [Suspect]
     Indication: OSTEOPOROSIS
     Dosage: UNK, UNK, UNK
     Route: 065
  2. TERIPARATIDE [Suspect]
     Dosage: UNK, UNK, QD
     Route: 065

REACTIONS (4)
  - Fracture [Unknown]
  - Hypoacusis [Not Recovered/Not Resolved]
  - Rash [Unknown]
  - Infection [Unknown]
